FAERS Safety Report 7238862-5 (Version None)
Quarter: 2011Q1

REPORT INFORMATION
  Report Type: 
  Country: None (occurrence: None)
  Receive Date: 20110119
  Receipt Date: 20110119
  Transmission Date: 20110831
  Serious: Yes (Hospitalization)
  Sender: FDA-Public Use
  Company Number: None

PATIENT
  Sex: Female
  Weight: 123.18 kg

DRUGS (10)
  1. OXYCONTIN [Concomitant]
  2. CISPLATIN [Suspect]
     Dosage: 75 MG
  3. PEMETREXED [Suspect]
     Dosage: 750 MG
  4. XANAX [Concomitant]
  5. COMPAZINE [Concomitant]
  6. PERCOCET [Concomitant]
  7. LOVENOX [Concomitant]
  8. FOLIC ACID [Concomitant]
  9. K-DUR [Concomitant]
  10. ZOLOFT [Concomitant]

REACTIONS (17)
  - DIARRHOEA [None]
  - BLOOD CALCIUM DECREASED [None]
  - DEVICE DISLOCATION [None]
  - VOMITING [None]
  - LYMPHADENOPATHY [None]
  - NAUSEA [None]
  - GASTROOESOPHAGEAL REFLUX DISEASE [None]
  - PAIN [None]
  - BLOOD UREA DECREASED [None]
  - BLOOD CHLORIDE INCREASED [None]
  - CULTURE URINE POSITIVE [None]
  - HAEMOGLOBIN DECREASED [None]
  - PLATELET COUNT DECREASED [None]
  - HAEMATOCRIT DECREASED [None]
  - MASS [None]
  - NEUTROPHIL COUNT DECREASED [None]
  - BONE LESION [None]
